FAERS Safety Report 12455109 (Version 1)
Quarter: 2016Q2

REPORT INFORMATION
  Report Type: Spontaneous
  Country: US (occurrence: US)
  Receive Date: 20160610
  Receipt Date: 20160610
  Transmission Date: 20160815
  Serious: Yes (Hospitalization, Other)
  Sender: FDA-Public Use
  Company Number: US-ACTAVIS-2016-11851

PATIENT
  Sex: Male

DRUGS (4)
  1. ASPIRIN (UNKNOWN) [Suspect]
     Active Substance: ASPIRIN
     Indication: PAIN IN EXTREMITY
  2. ASPIRIN (UNKNOWN) [Suspect]
     Active Substance: ASPIRIN
     Indication: THROMBOSIS PROPHYLAXIS
     Dosage: UNK
     Route: 065
  3. NAPROXEN (WATSON LABORATORIES) [Suspect]
     Active Substance: NAPROXEN
     Indication: THROMBOSIS PROPHYLAXIS
     Dosage: UNK
     Route: 065
  4. NAPROXEN (WATSON LABORATORIES) [Suspect]
     Active Substance: NAPROXEN
     Indication: PAIN IN EXTREMITY

REACTIONS (3)
  - Presyncope [Unknown]
  - Duodenal ulcer [Unknown]
  - Haemoglobin decreased [Unknown]
